FAERS Safety Report 7773086-4 (Version None)
Quarter: 2011Q3

REPORT INFORMATION
  Report Type: 
  Country: None (occurrence: None)
  Receive Date: 20110922
  Receipt Date: 20100517
  Transmission Date: 20111222
  Serious: No
  Sender: FDA-Public Use
  Company Number: US-ASTRAZENECA-2010SE51054

PATIENT
  Sex: Male

DRUGS (3)
  1. LITHIUM [Concomitant]
     Dosage: 300 MG IN MORNING AND 600 MG AT NIGHT
     Dates: start: 20060328
  2. SEROQUEL [Suspect]
     Dosage: 300MG TWO TAB BEFORE SLEEP
     Route: 048
     Dates: start: 20060328
  3. HALDOL [Concomitant]
     Dates: start: 20060328

REACTIONS (1)
  - SCHIZOPHRENIA, PARANOID TYPE [None]
